FAERS Safety Report 5919619-1 (Version None)
Quarter: 2008Q4

REPORT INFORMATION
  Report Type: 
  Country: None (occurrence: None)
  Receive Date: 20081015
  Receipt Date: 20081006
  Transmission Date: 20090506
  Serious: Yes (Other)
  Sender: FDA-Public Use
  Company Number: JP-ABBOTT-08P-087-0480562-00

PATIENT
  Age: 19 Year
  Sex: Male

DRUGS (7)
  1. REMIFENTANIL [Suspect]
     Indication: SEDATION
     Dosage: 0.5 MCG/KG/MIN
     Route: 042
  2. REMIFENTANIL [Suspect]
     Dosage: 0.25 MCG/KG/MIN
     Route: 042
  3. PROPOFOL [Suspect]
     Indication: SEDATION
     Dosage: 1.5 MCG/ML, RATE ADJUSTED THROUGHOUT OPERATION
  4. NITROUS OXIDE [Concomitant]
     Indication: SEDATION
     Dosage: NOT REPORTED
  5. LIDOCAINE HYDROCHLORIDE [Concomitant]
     Indication: DRUG USE FOR UNKNOWN INDICATION
     Dosage: NOT REPORTED
  6. EPINEPHRINE [Concomitant]
     Indication: DRUG USE FOR UNKNOWN INDICATION
     Dosage: NOT REPORTED
  7. FLURBIPROFEN ACETYL [Concomitant]
     Indication: DRUG USE FOR UNKNOWN INDICATION
     Dosage: NOT REPORTED

REACTIONS (2)
  - AGITATION [None]
  - MUSCLE CONTRACTIONS INVOLUNTARY [None]
